FAERS Safety Report 21094835 (Version 1)
Quarter: 2022Q3

REPORT INFORMATION
  Report Type: Spontaneous
  Country: US (occurrence: None)
  Receive Date: 20220715
  Receipt Date: 20220715
  Transmission Date: 20221027
  Serious: Yes (Other)
  Sender: FDA-Public Use
  Company Number: None

PATIENT
  Age: 70 Year
  Sex: Female
  Weight: 84.6 kg

DRUGS (20)
  1. PROLIA [Suspect]
     Active Substance: DENOSUMAB
     Indication: Osteoporosis
     Dates: start: 20201015
  2. DOFETILIDE [Concomitant]
     Active Substance: DOFETILIDE
  3. WARFARIN [Concomitant]
     Active Substance: WARFARIN
  4. OMEPRAZOLE [Concomitant]
     Active Substance: OMEPRAZOLE
  5. METOPROLOL [Concomitant]
     Active Substance: METOPROLOL
  6. AMLODIPINE [Concomitant]
     Active Substance: AMLODIPINE BESYLATE
  7. SPIRONOLACTONE [Concomitant]
     Active Substance: SPIRONOLACTONE
  8. DULOXETINE [Concomitant]
     Active Substance: DULOXETINE
  9. PROLIA [Concomitant]
     Active Substance: DENOSUMAB
  10. HIPREX [Concomitant]
     Active Substance: METHENAMINE HIPPURATE
  11. TEMAZEPAM [Concomitant]
     Active Substance: TEMAZEPAM
  12. TYLENOL [Concomitant]
     Active Substance: ACETAMINOPHEN
  13. IBUPROFEN [Concomitant]
     Active Substance: IBUPROFEN
  14. COENZYME Q10 [Concomitant]
     Active Substance: DIETARY SUPPLEMENT\UBIDECARENONE
  15. FISH OIL [Concomitant]
     Active Substance: FISH OIL
  16. Calcium with Vit D [Concomitant]
  17. BIOTIN [Concomitant]
     Active Substance: BIOTIN
  18. LYSINE [Concomitant]
     Active Substance: LYSINE
  19. Preser-vision [Concomitant]
  20. Apple Cider Vinegar gummies [Concomitant]

REACTIONS (1)
  - Skin haemorrhage [None]

NARRATIVE: CASE EVENT DATE: 20220427
